FAERS Safety Report 4866845-9 (Version None)
Quarter: 2005Q4

REPORT INFORMATION
  Report Type: 
  Country: None (occurrence: None)
  Receive Date: 20051222
  Receipt Date: 20051206
  Transmission Date: 20060501
  Serious: Yes (Disabling, Congenital Anomaly)
  Sender: FDA-Public Use
  Company Number: 220289

PATIENT
  Age: 66 Year
  Sex: Male

DRUGS (5)
  1. AVASTIN [Suspect]
     Indication: COLORECTAL CANCER METASTATIC
     Dosage: INTRAVENOUS
     Route: 042
  2. SINTROM [Suspect]
     Dosage: ORAL
     Route: 048
  3. BISOPROLOL FUMARATE [Concomitant]
  4. RAMIPRIL [Concomitant]
  5. RABEPRAZOLE SODIUM [Concomitant]

REACTIONS (7)
  - DRUG INTERACTION [None]
  - INJURY [None]
  - SPINAL CORD HAEMORRHAGE [None]
  - SPINAL CORD INJURY THORACIC [None]
  - SPINAL DISORDER [None]
  - SPINAL HAEMATOMA [None]
  - UROSEPSIS [None]
